FAERS Safety Report 20327453 (Version 1)
Quarter: 2022Q1

REPORT INFORMATION
  Report Type: Report from Study
  Country: US (occurrence: US)
  Receive Date: 20220112
  Receipt Date: 20220112
  Transmission Date: 20220423
  Serious: Yes (Disabling)
  Sender: FDA-Public Use
  Company Number: US-NOVARTISPH-NVSC2022US003328

PATIENT
  Age: 52 Year
  Sex: Female

DRUGS (1)
  1. KESIMPTA [Suspect]
     Active Substance: OFATUMUMAB
     Indication: Multiple sclerosis
     Dosage: 20 MG
     Route: 058
     Dates: start: 20211231

REACTIONS (8)
  - Paresis [Recovering/Resolving]
  - Muscle fatigue [Recovering/Resolving]
  - Gait inability [Recovering/Resolving]
  - Muscle twitching [Recovering/Resolving]
  - Muscle spasms [Recovering/Resolving]
  - Pyrexia [Recovering/Resolving]
  - Malaise [Recovering/Resolving]
  - Product complaint [Unknown]

NARRATIVE: CASE EVENT DATE: 20211231
